FAERS Safety Report 8551857-4 (Version None)
Quarter: 2012Q3

REPORT INFORMATION
  Report Type: 
  Country: None (occurrence: None)
  Receive Date: 20120730
  Receipt Date: 20120724
  Transmission Date: 20120928
  Serious: No
  Sender: FDA-Public Use
  Company Number: US-BAYER-2012-076010

PATIENT

DRUGS (2)
  1. ALEVE (CAPLET) [Suspect]
  2. PAMPRIN TAB [Suspect]

REACTIONS (1)
  - DRUG INEFFECTIVE [None]
